FAERS Safety Report 13825945 (Version 1)
Quarter: 2017Q3

REPORT INFORMATION
  Report Type: Spontaneous
  Country: US (occurrence: US)
  Receive Date: 20170802
  Receipt Date: 20170802
  Transmission Date: 20171127
  Serious: No
  Sender: FDA-Public Use
  Company Number: US-DRREDDYS-DRL/USA/16/0080518

PATIENT
  Age: 77 Year
  Sex: Male
  Weight: 63.5 kg

DRUGS (1)
  1. OMEPRAZOLE MAGNESIUM DELAYED RELEASE OTC [Suspect]
     Active Substance: OMEPRAZOLE MAGNESIUM
     Indication: GASTROINTESTINAL TRACT IRRITATION
     Dosage: PRIOR TO BREAKFAST
     Route: 048
     Dates: start: 201603, end: 20160607

REACTIONS (1)
  - Diarrhoea [Recovering/Resolving]
